FAERS Safety Report 14872982 (Version 1)
Quarter: 2018Q2

REPORT INFORMATION
  Report Type: Other
  Country: CA (occurrence: CA)
  Receive Date: 20180510
  Receipt Date: 20180510
  Transmission Date: 20180711
  Serious: Yes (Other)
  Sender: FDA-Public Use
  Company Number: CA-ASTELLAS-2018US021164

PATIENT
  Sex: Female

DRUGS (4)
  1. AZATHIOPRINE. [Suspect]
     Active Substance: AZATHIOPRINE
     Indication: MICROSCOPIC POLYANGIITIS
     Dosage: UNK, UNKNOWN FREQ.
     Route: 065
  2. MYCOPHENOLATE MOFETIL. [Suspect]
     Active Substance: MYCOPHENOLATE MOFETIL
     Indication: RENAL TRANSPLANT
     Dosage: UNK, UNKNOWN FREQ.
     Route: 065
  3. TACROLIMUS. [Suspect]
     Active Substance: TACROLIMUS
     Indication: RENAL TRANSPLANT
     Dosage: UNK, UNKNOWN FREQ.
     Route: 065
  4. DACLIZUMAB [Suspect]
     Active Substance: DACLIZUMAB
     Indication: RENAL TRANSPLANT
     Dosage: UNK UNK, UNKNOWN FREQ.
     Route: 065

REACTIONS (4)
  - Disease progression [Recovering/Resolving]
  - End stage renal disease [Recovering/Resolving]
  - Product use in unapproved indication [Recovering/Resolving]
  - Kidney transplant rejection [Recovering/Resolving]
